FAERS Safety Report 18538667 (Version 1)
Quarter: 2020Q4

REPORT INFORMATION
  Report Type: Spontaneous
  Country: US (occurrence: US)
  Receive Date: 20201124
  Receipt Date: 20201124
  Transmission Date: 20210114
  Serious: Yes (Hospitalization, Other)
  Sender: FDA-Public Use
  Company Number: US-GLENMARK PHARMACEUTICALS-2020GMK050530

PATIENT
  Age: 66 Year
  Sex: Male

DRUGS (9)
  1. PREDNISONE. [Suspect]
     Active Substance: PREDNISONE
     Indication: IMMUNOSUPPRESSION
     Dosage: UNK; TAPER
     Route: 048
     Dates: start: 201809
  2. NYSTATIN. [Concomitant]
     Active Substance: NYSTATIN
     Indication: INFECTION PROPHYLAXIS
     Dosage: UNK; SWISH AND SWALLOW
     Route: 065
     Dates: start: 201808
  3. MYCOPHENOLATE MOFETIL. [Suspect]
     Active Substance: MYCOPHENOLATE MOFETIL
     Indication: IMMUNOSUPPRESSION
     Dosage: UNK
     Route: 065
     Dates: start: 201808
  4. METHYLPREDNISOLONE. [Suspect]
     Active Substance: METHYLPREDNISOLONE
     Indication: IMMUNOSUPPRESSION
     Dosage: UNK
     Route: 065
     Dates: start: 201809
  5. ANTITHYMOCYTE IMMUNOGLOBULIN [Suspect]
     Active Substance: THYMOCYTE IMMUNE GLOBULIN NOS
     Indication: IMMUNOSUPPRESSION
     Dosage: 4 DOSAGE FORM, UNK
     Route: 065
     Dates: start: 201808
  6. SULFAMETHOXAZOLE;TRIMETHOPRIM [Concomitant]
     Active Substance: SULFAMETHOXAZOLE\TRIMETHOPRIM
     Indication: INFECTION PROPHYLAXIS
     Dosage: UNK
     Route: 065
     Dates: start: 201808
  7. IMMUNOGLOBULINS NOS [Suspect]
     Active Substance: IMMUNE GLOBULIN NOS
     Indication: IMMUNOSUPPRESSION
     Dosage: UNK
     Route: 042
     Dates: start: 201809
  8. TACROLIMUS. [Suspect]
     Active Substance: TACROLIMUS
     Indication: IMMUNOSUPPRESSION
     Dosage: UNK
     Route: 065
     Dates: start: 201808
  9. VALGANCICLOVIR. [Concomitant]
     Active Substance: VALGANCICLOVIR
     Indication: INFECTION PROPHYLAXIS
     Dosage: UNK
     Route: 065
     Dates: start: 201808

REACTIONS (10)
  - Neutrophilic dermatosis [Recovering/Resolving]
  - Abscess [Recovering/Resolving]
  - Postoperative wound infection [Recovered/Resolved]
  - Chronic papillomatous dermatitis [Recovering/Resolving]
  - Staphylococcal infection [Recovering/Resolving]
  - Pulmonary mass [Recovering/Resolving]
  - Disseminated trichosporonosis [Recovering/Resolving]
  - Dermatophytosis [Recovering/Resolving]
  - Inflammation [Recovering/Resolving]
  - Trichophytosis [Recovering/Resolving]

NARRATIVE: CASE EVENT DATE: 201809
